FAERS Safety Report 11774453 (Version 1)
Quarter: 2015Q4

REPORT INFORMATION
  Report Type: Spontaneous
  Country: US (occurrence: US)
  Receive Date: 20151124
  Receipt Date: 20151124
  Transmission Date: 20160304
  Serious: No
  Sender: FDA-Public Use
  Company Number: US-GLAXOSMITHKLINE-US2015162944

PATIENT
  Sex: Female

DRUGS (2)
  1. VENTOLIN HFA [Suspect]
     Active Substance: ALBUTEROL SULFATE
     Indication: ASTHMA
     Dosage: UNK
     Route: 055
  2. WARFARIN [Concomitant]
     Active Substance: WARFARIN

REACTIONS (8)
  - Device use error [Unknown]
  - Chest pain [Recovering/Resolving]
  - Cough [Recovering/Resolving]
  - Foreign body [Recovered/Resolved]
  - Retching [Recovering/Resolving]
  - Chronic throat clearing [Recovering/Resolving]
  - Underdose [Unknown]
  - Sinusitis [Recovering/Resolving]
